FAERS Safety Report 10569453 (Version 2)
Quarter: 2014Q4

REPORT INFORMATION
  Report Type: Report from Study
  Country: CA (occurrence: CA)
  Receive Date: 20141106
  Receipt Date: 20141119
  Transmission Date: 20150529
  Serious: Yes (Death)
  Sender: FDA-Public Use
  Company Number: CA-ABBVIE-14K-028-1304206-00

PATIENT
  Sex: Female

DRUGS (2)
  1. UNSPECIFIED SYSTEMIC TREATMENTS [Concomitant]
     Indication: PRODUCT USED FOR UNKNOWN INDICATION
  2. HUMIRA [Suspect]
     Active Substance: ADALIMUMAB
     Indication: PSORIASIS
     Route: 058
     Dates: start: 20120315

REACTIONS (1)
  - Hepatic cirrhosis [Fatal]
